FAERS Safety Report 18462317 (Version 1)
Quarter: 2020Q4

REPORT INFORMATION
  Report Type: Spontaneous
  Country: US (occurrence: US)
  Receive Date: 20201103
  Receipt Date: 20201103
  Transmission Date: 20210114
  Serious: Yes (Hospitalization)
  Sender: FDA-Public Use
  Company Number: None

PATIENT
  Age: 91 Year
  Sex: Male

DRUGS (9)
  1. VYNDAMAX [Suspect]
     Active Substance: TAFAMIDIS
     Indication: AMYLOIDOSIS SENILE
     Route: 048
     Dates: start: 20201021
  2. ROSUVASTATIN. [Concomitant]
     Active Substance: ROSUVASTATIN
  3. PREDNISONE. [Concomitant]
     Active Substance: PREDNISONE
  4. ELIQUIS [Concomitant]
     Active Substance: APIXABAN
  5. AMIODARONE [Concomitant]
     Active Substance: AMIODARONE
  6. TAMSULOSIN [Concomitant]
     Active Substance: TAMSULOSIN
  7. POLYETH GLYC [Concomitant]
     Active Substance: POLYETHYLENE GLYCOLS
  8. PANTOPRAZOLE [Concomitant]
     Active Substance: PANTOPRAZOLE
  9. LINZESS [Concomitant]
     Active Substance: LINACLOTIDE

REACTIONS (1)
  - Therapy interrupted [None]
